FAERS Safety Report 7536641-2 (Version None)
Quarter: 2011Q2

REPORT INFORMATION
  Report Type: 
  Country: None (occurrence: None)
  Receive Date: 20110609
  Receipt Date: 20110606
  Transmission Date: 20111010
  Serious: Yes (Death, Life-Threatening, Hospitalization, Disabling, Other)
  Sender: FDA-Public Use
  Company Number: RU-SANOFI-AVENTIS-2010SA068355

PATIENT
  Age: 64 Year
  Sex: Male
  Weight: 72 kg

DRUGS (16)
  1. INVESTIGATIONAL DRUG [Suspect]
     Indication: COLORECTAL CANCER
     Route: 048
     Dates: start: 20100526, end: 20101027
  2. MILGAMMA [Concomitant]
     Route: 048
     Dates: start: 20100923, end: 20101104
  3. FLUOROURACIL [Suspect]
     Indication: COLORECTAL CANCER
     Dosage: OVER 46-48 HOURS ON DAY 1 OF EVERY 14 DAY CYCLE
     Route: 041
     Dates: start: 20101001, end: 20101003
  4. FLUOROURACIL [Suspect]
     Route: 040
     Dates: start: 20100526, end: 20100526
  5. FLUOROURACIL [Suspect]
     Route: 040
     Dates: start: 20101001, end: 20101001
  6. DEXAMETHASONE [Concomitant]
     Dates: start: 20101013, end: 20101013
  7. OXALIPLATIN [Suspect]
     Route: 041
     Dates: start: 20100929, end: 20100929
  8. FLUOROURACIL [Suspect]
     Dosage: OVER 46-48 HOURS ON DAY 1 OF EVERY 14 DAY CYCLE
     Route: 041
     Dates: start: 20100526, end: 20100528
  9. ADEMETIONINE [Concomitant]
     Dates: start: 20100403, end: 20101104
  10. ESSENTIALE [Concomitant]
     Indication: PROPHYLAXIS
     Dosage: 600 UNKNOWN, TWICE DAILY DOSE:600 UNIT(S)
     Dates: start: 20100818, end: 20100923
  11. ADEMETIONINE [Concomitant]
     Indication: PROPHYLAXIS
     Dates: start: 20100403, end: 20101104
  12. ESSENTIALE [Concomitant]
     Dosage: 600 UNKNOWN, TWICE DAILY DOSE:600 UNIT(S)
     Dates: start: 20100818, end: 20100923
  13. LACTOBACILLUS BIFIDUS, LYOPHILIZED [Concomitant]
     Dates: start: 20100902, end: 20100905
  14. CLEMASTINE FUMARATE [Concomitant]
     Dates: start: 20101013, end: 20101013
  15. OXALIPLATIN [Suspect]
     Indication: COLORECTAL CANCER
     Route: 041
     Dates: start: 20100526, end: 20100526
  16. THIOCTIC ACID [Concomitant]
     Dates: start: 20100923, end: 20101104

REACTIONS (3)
  - APNOEA [None]
  - COMA [None]
  - HAEMORRHAGIC STROKE [None]
